FAERS Safety Report 21721686 (Version 2)
Quarter: 2023Q2

REPORT INFORMATION
  Report Type: Spontaneous
  Country: DE (occurrence: DE)
  Receive Date: 20221213
  Receipt Date: 20230523
  Transmission Date: 20230722
  Serious: Yes (Other)
  Sender: FDA-Public Use
  Company Number: DE-TAKEDA-2022TUS095283

PATIENT
  Age: 7 Year
  Sex: Female
  Weight: 35 kg

DRUGS (8)
  1. KIOVIG [Suspect]
     Active Substance: HUMAN IMMUNOGLOBULIN G
     Indication: Post-acute COVID-19 syndrome
     Dosage: 40 GRAM
     Route: 042
     Dates: start: 20210828, end: 20210828
  2. KIOVIG [Suspect]
     Active Substance: HUMAN IMMUNOGLOBULIN G
     Dosage: 20 GRAM
     Route: 042
     Dates: start: 20210831, end: 20210831
  3. GAMUNEX [Suspect]
     Active Substance: HUMAN IMMUNOGLOBULIN G
     Indication: Post-acute COVID-19 syndrome
     Dosage: 20 GRAM
     Route: 042
     Dates: start: 20210828, end: 20210828
  4. GAMUNEX [Suspect]
     Active Substance: HUMAN IMMUNOGLOBULIN G
     Dosage: 10 GRAM
     Route: 042
     Dates: start: 20210831, end: 20210831
  5. PREDNISOLONE [Concomitant]
     Active Substance: PREDNISOLONE
     Indication: Arteritis coronary
     Dosage: 70 MILLIGRAM
     Route: 048
  6. ASPIRIN [Concomitant]
     Active Substance: ASPIRIN
     Dosage: UNK
     Route: 048
  7. HEPARIN [Concomitant]
     Active Substance: HEPARIN SODIUM
     Indication: Prophylaxis
     Dosage: UNK, Q5WEEKS
     Route: 065
  8. ASPIRIN [Concomitant]
     Active Substance: ASPIRIN
     Indication: Arteritis coronary
     Dosage: UNK UNK, Q5WEEKS
     Route: 065

REACTIONS (6)
  - Haemoglobin decreased [Recovering/Resolving]
  - Haemolytic anaemia [Recovering/Resolving]
  - Oedema [Unknown]
  - Fatigue [Unknown]
  - Blood pressure fluctuation [Unknown]
  - Pyrexia [Unknown]

NARRATIVE: CASE EVENT DATE: 20210101
